FAERS Safety Report 8504228-0 (Version None)
Quarter: 2012Q3

REPORT INFORMATION
  Report Type: 
  Country: None (occurrence: None)
  Receive Date: 20120711
  Receipt Date: 20120124
  Transmission Date: 20120928
  Serious: Yes (Death)
  Sender: FDA-Public Use
  Company Number: NL-BAXTER-2012BH003104

PATIENT
  Age: 64 Year
  Sex: Female

DRUGS (3)
  1. PHYSIOSOL IN PLASTIC CONTAINER [Suspect]
     Route: 033
     Dates: start: 20070319
  2. VITAMIN D [Concomitant]
  3. EXTRANEAL [Suspect]
     Route: 033
     Dates: start: 20070319

REACTIONS (1)
  - THERAPY CESSATION [None]
